FAERS Safety Report 4533921-X (Version None)
Quarter: 2004Q4

REPORT INFORMATION
  Report Type: 
  Country: None (occurrence: None)
  Receive Date: 20041210
  Receipt Date: 20041025
  Transmission Date: 20050328
  Serious: No
  Sender: FDA-Public Use
  Company Number: 2004-00706

PATIENT
  Age: 69 Year
  Sex: Male
  Weight: 83.4 kg

DRUGS (4)
  1. VELCADE [Suspect]
     Indication: MULTIPLE MYELOMA
     Dosage: 1.30 MG/M2 , 2/WEEK INTRAVENOUS
     Route: 042
     Dates: start: 20040928
  2. DIGOXIN [Concomitant]
  3. COMPAZINE [Concomitant]
  4. TYLENOL [Concomitant]

REACTIONS (1)
  - ABDOMINAL PAIN [None]
